FAERS Safety Report 15849229 (Version 2)
Quarter: 2020Q2

REPORT INFORMATION
  Report Type: Spontaneous
  Country: FR (occurrence: FR)
  Receive Date: 20190121
  Receipt Date: 20200424
  Transmission Date: 20200713
  Serious: Yes (Other)
  Sender: FDA-Public Use
  Company Number: FR-SA-2017SA266508

PATIENT
  Age: 64 Year
  Sex: Male
  Weight: 70 kg

DRUGS (14)
  1. OXALIPLATIN. [Suspect]
     Active Substance: OXALIPLATIN
     Dosage: 155 MG
     Dates: start: 20150326
  2. FLUOROURACIL. [Suspect]
     Active Substance: FLUOROURACIL
     Dosage: 4392 MG
     Route: 041
     Dates: start: 20150326
  3. BEVACIZUMAB. [Suspect]
     Active Substance: BEVACIZUMAB
     Indication: COLORECTAL CANCER METASTATIC
     Dosage: 365 MG
     Dates: start: 20150108
  4. PERINDOPRIL [Concomitant]
     Active Substance: PERINDOPRIL
     Dosage: 50 MG,UNK
     Route: 065
  5. CALCIUM LEVOFOLINATE [Suspect]
     Active Substance: LEVOLEUCOVORIN CALCIUM
     Indication: COLORECTAL CANCER METASTATIC
     Dosage: 366 MG,UNK
     Route: 065
     Dates: start: 20150108
  6. FLUOROURACIL. [Suspect]
     Active Substance: FLUOROURACIL
     Indication: COLORECTAL CANCER METASTATIC
     Dosage: 732 MG,UNK
     Route: 040
     Dates: start: 20150108, end: 20150122
  7. FLUOROURACIL. [Suspect]
     Active Substance: FLUOROURACIL
     Dosage: 4392 MG,UNK
     Route: 041
     Dates: start: 20150124
  8. BEVACIZUMAB. [Suspect]
     Active Substance: BEVACIZUMAB
     Dosage: 350 UNK
     Dates: start: 20150323
  9. BRILIQUE [Concomitant]
     Active Substance: TICAGRELOR
     Dosage: UNK UNK,UNK
     Route: 065
  10. OXALIPLATIN. [Suspect]
     Active Substance: OXALIPLATIN
     Indication: COLORECTAL CANCER METASTATIC
     Dosage: 155.5 MG,UNK
     Route: 065
     Dates: start: 20150108
  11. FLUOROURACIL. [Suspect]
     Active Substance: FLUOROURACIL
     Dosage: 732 MG
     Route: 040
     Dates: start: 20150326
  12. SIMVASTATIN. [Suspect]
     Active Substance: SIMVASTATIN
     Indication: COLORECTAL CANCER METASTATIC
     Dosage: 365 MG,UNK
     Route: 065
     Dates: start: 20150108
  13. KARDEGIC [Concomitant]
     Active Substance: ASPIRIN DL-LYSINE
     Dosage: UNK UNK,UNK
     Route: 065
  14. BISOPROLOL [Concomitant]
     Active Substance: BISOPROLOL
     Dosage: 50 MG,UNK
     Route: 065

REACTIONS (6)
  - Anaemia [Recovered/Resolved]
  - Peripheral arterial occlusive disease [Recovered/Resolved]
  - Neutropenia [Recovered/Resolved]
  - Lymphopenia [Recovered/Resolved]
  - Leukopenia [Recovered/Resolved]
  - Leukopenia [Recovered/Resolved]

NARRATIVE: CASE EVENT DATE: 20150122
